FAERS Safety Report 17118590 (Version 9)
Quarter: 2023Q2

REPORT INFORMATION
  Report Type: Spontaneous
  Country: PK (occurrence: PK)
  Receive Date: 20191206
  Receipt Date: 20230420
  Transmission Date: 20230721
  Serious: Yes (Other)
  Sender: FDA-Public Use
  Company Number: PK-PFIZER INC-2019518552

PATIENT
  Age: 19 Year
  Sex: Male
  Weight: 49 kg

DRUGS (13)
  1. ENBREL [Suspect]
     Active Substance: ETANERCEPT
     Indication: Juvenile spondyloarthritis
     Dosage: UNK
     Route: 065
  2. ENBREL [Suspect]
     Active Substance: ETANERCEPT
     Indication: Osteoarthritis
     Dosage: 50 MILLIGRAM, QWK
     Route: 058
  3. ENBREL [Suspect]
     Active Substance: ETANERCEPT
     Indication: Ankylosing spondylitis
     Dosage: 50 MILLIGRAM, QWK
     Route: 058
  4. ENBREL [Suspect]
     Active Substance: ETANERCEPT
     Dosage: 50 MILLIGRAM, QWK
     Route: 058
  5. ENBREL [Suspect]
     Active Substance: ETANERCEPT
     Dosage: 50 MILLIGRAM
     Route: 058
  6. METHOTREXATE [Concomitant]
     Active Substance: METHOTREXATE
     Dosage: 10 MILLIGRAM, QWK
     Dates: start: 201906
  7. FOLIC ACID [Concomitant]
     Active Substance: FOLIC ACID
     Dosage: 5 MILLIGRAM, 2 TIMES/WK
  8. SALAZODINE [Concomitant]
     Dosage: 1000 MILLIGRAM, BID
     Dates: start: 2015, end: 202011
  9. ACECLOFENAC [Concomitant]
     Active Substance: ACECLOFENAC
     Dosage: UNK
  10. ACECLOFENAC [Concomitant]
     Active Substance: ACECLOFENAC
     Dosage: 100 MILLIGRAM, QD
  11. ACECLOFENAC [Concomitant]
     Active Substance: ACECLOFENAC
     Dosage: 100 UNK
  12. NEXIUM [Concomitant]
     Active Substance: ESOMEPRAZOLE MAGNESIUM
     Dosage: 20 MILLIGRAM, QD
  13. Sangobion [Concomitant]
     Dosage: 1 DOSAGE FORM, QD

REACTIONS (29)
  - Nephrolithiasis [Unknown]
  - Haematuria [Unknown]
  - Red blood cell sedimentation rate increased [Recovering/Resolving]
  - Alanine aminotransferase increased [Unknown]
  - Aspartate aminotransferase increased [Unknown]
  - Gingival bleeding [Unknown]
  - Rash [Unknown]
  - Mouth ulceration [Unknown]
  - Pain in extremity [Unknown]
  - Infection [Unknown]
  - Musculoskeletal stiffness [Unknown]
  - Joint range of motion decreased [Unknown]
  - Off label use [Unknown]
  - Drug ineffective for unapproved indication [Unknown]
  - Off label use [Unknown]
  - Cough [Recovered/Resolved]
  - Pyrexia [Recovered/Resolved]
  - Back pain [Recovered/Resolved]
  - Red blood cell sedimentation rate increased [Recovering/Resolving]
  - Joint range of motion decreased [Unknown]
  - Back pain [Recovered/Resolved]
  - Ocular hyperaemia [Unknown]
  - Urinary tract infection [Recovered/Resolved]
  - Flank pain [Recovered/Resolved]
  - Alopecia [Unknown]
  - Diarrhoea [Unknown]
  - Joint swelling [Unknown]
  - Joint warmth [Unknown]
  - Dengue fever [Unknown]

NARRATIVE: CASE EVENT DATE: 20191030
